FAERS Safety Report 13176808 (Version 4)
Quarter: 2018Q3

REPORT INFORMATION
  Report Type: Report from Study
  Country: None (occurrence: CA)
  Receive Date: 20170201
  Receipt Date: 20180806
  Transmission Date: 20181010
  Serious: Yes (Hospitalization, Other)
  Sender: FDA-Public Use
  Company Number: CA-ABBVIE-17P-028-1857988-00

PATIENT
  Age: 64 Year
  Sex: Male

DRUGS (1)
  1. HUMIRA [Suspect]
     Active Substance: ADALIMUMAB
     Indication: PSORIASIS
     Route: 058
     Dates: start: 20091217

REACTIONS (7)
  - Hepatic pain [Not Recovered/Not Resolved]
  - Cardiac disorder [Recovered/Resolved]
  - Arteriosclerosis coronary artery [Unknown]
  - Coronary artery bypass [Unknown]
  - Angina pectoris [Unknown]
  - Cerebrovascular accident [Unknown]
  - Renal pain [Not Recovered/Not Resolved]

NARRATIVE: CASE EVENT DATE: 2015
